FAERS Safety Report 6401602-3 (Version None)
Quarter: 2009Q4

REPORT INFORMATION
  Report Type: 
  Country: None (occurrence: None)
  Receive Date: 20091015
  Receipt Date: 20091009
  Transmission Date: 20100525
  Serious: Yes (Other)
  Sender: FDA-Public Use
  Company Number: US-JNJFOC-20091004114

PATIENT
  Sex: Female
  Weight: 45.36 kg

DRUGS (3)
  1. DURAGESIC-100 [Suspect]
     Indication: BACK PAIN
     Route: 062
     Dates: start: 20030401, end: 20091001
  2. PERCODAN-DEMI [Concomitant]
     Indication: BREAKTHROUGH PAIN
     Route: 048
     Dates: start: 20030101
  3. TOPROL-XL [Concomitant]
     Indication: HYPERTENSION
     Route: 048
     Dates: start: 20000101

REACTIONS (3)
  - BODY HEIGHT DECREASED [None]
  - CEREBROVASCULAR ACCIDENT [None]
  - INAPPROPRIATE SCHEDULE OF DRUG ADMINISTRATION [None]
